FAERS Safety Report 8819383 (Version 1)
Quarter: 2012Q4

REPORT INFORMATION
  Report Type: Spontaneous
  Country: US (occurrence: None)
  Receive Date: 20121004
  Receipt Date: 20121004
  Transmission Date: 20130627
  Serious: Yes (Other)
  Sender: FDA-Public Use
  Company Number: None

PATIENT
  Age: 55 Year
  Sex: Female
  Weight: 87 kg

DRUGS (18)
  1. REVLIMID [Suspect]
     Indication: MULTIPLE MYELOMA
     Dosage: 2.5 mg Daily po
     Route: 048
     Dates: start: 20120910, end: 20120928
  2. DARBEPOETIN ALFA [Concomitant]
  3. METOPROLOL [Concomitant]
  4. SULFASALAZINE [Concomitant]
  5. SIMVASTATIN [Concomitant]
  6. ZOLPIDEM [Concomitant]
  7. FUROSEMIDE [Concomitant]
  8. SYNTHROID [Concomitant]
  9. SEVELAMER CARBONATE [Concomitant]
  10. FOLIC ACID [Concomitant]
  11. KLOR-CON [Concomitant]
  12. CALCITRIOL [Concomitant]
  13. HEPARIN [Concomitant]
  14. PREVIDENT [Concomitant]
  15. VITAMIN B COMPLEX [Concomitant]
  16. CALCIUM WITH VITAMIN D [Concomitant]
  17. TUMS [Concomitant]
  18. LIDOCAINE [Concomitant]

REACTIONS (4)
  - Rash pruritic [None]
  - Rash erythematous [None]
  - Pruritus [None]
  - Rash [None]
